FAERS Safety Report 8303520-2 (Version None)
Quarter: 2012Q2

REPORT INFORMATION
  Report Type: 
  Country: None (occurrence: None)
  Receive Date: 20120418
  Receipt Date: 20120404
  Transmission Date: 20120825
  Serious: Yes (Hospitalization)
  Sender: FDA-Public Use
  Company Number: ACO_29426_2012

PATIENT
  Age: 25 Year
  Sex: Female

DRUGS (3)
  1. FAMPYRA (DALFAMPRIDINE) TABLET, 10MG [Suspect]
     Indication: PRODUCT USED FOR UNKNOWN INDICATION
     Dosage: 10 MG BID, ORAL
     Route: 048
     Dates: start: 20120124
  2. TYSABRI [Concomitant]
  3. AMITRIPTYLINE HCL [Concomitant]

REACTIONS (1)
  - GRAND MAL CONVULSION [None]
